FAERS Safety Report 4362956-5 (Version None)
Quarter: 2004Q2

REPORT INFORMATION
  Report Type: 
  Country: None (occurrence: None)
  Receive Date: 20040517
  Receipt Date: 20040409
  Transmission Date: 20050107
  Serious: No
  Sender: FDA-Public Use
  Company Number: S04-USA-01905-01

PATIENT
  Age: 69 Year
  Sex: Female

DRUGS (7)
  1. NAMENDA [Suspect]
     Indication: DEMENTIA
     Dosage: 20 MG QD PO
     Route: 048
     Dates: start: 20040404, end: 20040408
  2. NAMENDA [Suspect]
     Indication: DEMENTIA
     Dosage: 10 MG QAM PO
     Route: 048
     Dates: start: 20040409
  3. NAMENDA [Suspect]
     Indication: DEMENTIA
     Dosage: 5 MG QHS PO
     Route: 048
     Dates: start: 20040409
  4. NAMENDA [Suspect]
     Indication: DEMENTIA
     Dosage: 5 MG QD PO
     Route: 048
     Dates: start: 20040314, end: 20040320
  5. NAMENDA [Suspect]
     Indication: DEMENTIA
     Dosage: 10 MG QD PO
     Route: 048
     Dates: start: 20040321, end: 20040327
  6. NAMENDA [Suspect]
     Indication: DEMENTIA
     Dosage: 15 MG QD PO
     Route: 048
     Dates: start: 20040328, end: 20040403
  7. REMINYL [Concomitant]

REACTIONS (1)
  - VOMITING [None]
